FAERS Safety Report 17257700 (Version 1)
Quarter: 2019Q4

REPORT INFORMATION
  Report Type: Spontaneous
  Country: US (occurrence: US)
  Receive Date: 20191217
  Receipt Date: 20191217
  Transmission Date: 20200122
  Serious: Yes (Hospitalization)
  Sender: FDA-Public Use
  Company Number: None

PATIENT
  Age: 67 Year
  Sex: Female

DRUGS (2)
  1. VERZENIO [Concomitant]
     Active Substance: ABEMACICLIB
  2. IBRANCE [Suspect]
     Active Substance: PALBOCICLIB
     Indication: BREAST CANCER FEMALE
     Dosage: 21 DAYS ON, 7 OFF ORAL
     Route: 048
     Dates: start: 20180307

REACTIONS (4)
  - Urinary tract infection [None]
  - Vomiting [None]
  - Therapy cessation [None]
  - Sepsis [None]

NARRATIVE: CASE EVENT DATE: 20191120
